FAERS Safety Report 12282931 (Version 3)
Quarter: 2016Q3

REPORT INFORMATION
  Report Type: Spontaneous
  Country: US (occurrence: US)
  Receive Date: 20160419
  Receipt Date: 20160809
  Transmission Date: 20161109
  Serious: No
  Sender: FDA-Public Use
  Company Number: US-PFIZER INC-2016199409

PATIENT
  Age: 6 Year
  Sex: Male
  Weight: 22 kg

DRUGS (4)
  1. QUILLIVANT XR [Suspect]
     Active Substance: METHYLPHENIDATE HYDROCHLORIDE
     Dosage: 5 ML, 1X/DAY
     Dates: start: 201603
  2. QUILLIVANT XR [Suspect]
     Active Substance: METHYLPHENIDATE HYDROCHLORIDE
     Indication: ATTENTION DEFICIT/HYPERACTIVITY DISORDER
     Dosage: 3 ML, 1X/DAY
     Dates: start: 20160308, end: 2016
  3. FOCALIN [Concomitant]
     Active Substance: DEXMETHYLPHENIDATE HYDROCHLORIDE
     Dosage: 10 ML, 1X/DAY AT 12:30PM IN AFTERNOON
  4. QUILLIVANT XR [Suspect]
     Active Substance: METHYLPHENIDATE HYDROCHLORIDE
     Dosage: 4 ML, 1X/DAY
     Dates: start: 2016

REACTIONS (2)
  - Drug effect incomplete [Not Recovered/Not Resolved]
  - Metabolic disorder [Not Recovered/Not Resolved]

NARRATIVE: CASE EVENT DATE: 2016
